FAERS Safety Report 24535590 (Version 3)
Quarter: 2024Q4

REPORT INFORMATION
  Report Type: Spontaneous
  Country: GR (occurrence: GR)
  Receive Date: 20241022
  Receipt Date: 20241211
  Transmission Date: 20250114
  Serious: Yes (Other)
  Sender: DAIICHI
  Company Number: GR-AstraZeneca-CH-00721737A

PATIENT
  Sex: Female

DRUGS (1)
  1. TRASTUZUMAB DERUXTECAN [Suspect]
     Active Substance: TRASTUZUMAB DERUXTECAN
     Indication: HER2 positive breast cancer
     Dosage: UNK
     Route: 065

REACTIONS (2)
  - Metastases to central nervous system [Unknown]
  - Hepatic enzyme increased [Unknown]
